FAERS Safety Report 4601914-X (Version None)
Quarter: 2005Q2

REPORT INFORMATION
  Report Type: 
  Country: None (occurrence: None)
  Receive Date: 20050215
  Receipt Date: 20041210
  Transmission Date: 20051028
  Serious: Yes (Other)
  Sender: FDA-Public Use
  Company Number: 389133

PATIENT
  Age: 47 Year
  Sex: Male
  Weight: 65.8 kg

DRUGS (5)
  1. PEGASYS [Suspect]
     Indication: HEPATITIS C
     Dosage: 0.5 ML 1 PER WEEK SUBCUTANEOUS
     Route: 058
     Dates: start: 20041201, end: 20041217
  2. COPEGUS [Suspect]
     Indication: HEPATITIS C
     Dosage: 600 MG 2 PER DAY ORAL
     Route: 048
     Dates: start: 20041201, end: 20041217
  3. LANTUS [Concomitant]
  4. LASIX [Concomitant]
  5. SPIRONOLACTONE [Concomitant]

REACTIONS (6)
  - ASTHENIA [None]
  - BLOOD GLUCOSE FLUCTUATION [None]
  - DIZZINESS [None]
  - FALL [None]
  - INJECTION SITE ANAESTHESIA [None]
  - SCRATCH [None]
